FAERS Safety Report 8388128-5 (Version None)
Quarter: 2012Q2

REPORT INFORMATION
  Report Type: 
  Country: None (occurrence: None)
  Receive Date: 20120525
  Receipt Date: 20120521
  Transmission Date: 20120825
  Serious: Yes (Other)
  Sender: FDA-Public Use
  Company Number: US-PFIZER INC-2012106395

PATIENT
  Age: 50 Year
  Sex: Female
  Weight: 68.934 kg

DRUGS (2)
  1. TOVIAZ [Suspect]
     Indication: BLADDER PROLAPSE
     Dosage: 8 MG, 1X/DAY
     Route: 048
     Dates: start: 20110914
  2. VIIBRYD [Suspect]

REACTIONS (7)
  - RASH [None]
  - GALLBLADDER DISORDER [None]
  - FLUID RETENTION [None]
  - MANIA [None]
  - ARTHRALGIA [None]
  - MYOSITIS [None]
  - ANGIOEDEMA [None]
